FAERS Safety Report 4788549-3 (Version None)
Quarter: 2005Q4

REPORT INFORMATION
  Report Type: 
  Country: None (occurrence: None)
  Receive Date: 20051005
  Receipt Date: 20051005
  Transmission Date: 20060501
  Serious: No
  Sender: FDA-Public Use
  Company Number: None

PATIENT
  Age: 42 Year
  Sex: Female
  Weight: 80 kg

DRUGS (5)
  1. PACLITAXEL [Suspect]
     Indication: BREAST CANCER METASTATIC
     Dosage: 323 MG IV Q 2 WK (175 MG/M2)
     Route: 042
     Dates: start: 20050131
  2. PACLITAXEL [Suspect]
     Indication: BREAST CANCER METASTATIC
     Dosage: 323 MG IV Q 2 WK (175 MG/M2)
     Route: 042
     Dates: start: 20050214
  3. DIPHENHYDRAMINE [Concomitant]
  4. DEXAMETHASONE [Concomitant]
  5. CIMETIDINE [Concomitant]

REACTIONS (3)
  - CHEST PAIN [None]
  - DYSPNOEA [None]
  - INFUSION RELATED REACTION [None]
